FAERS Safety Report 5755331-X (Version None)
Quarter: 2008Q2

REPORT INFORMATION
  Report Type: 
  Country: None (occurrence: None)
  Receive Date: 20080529
  Receipt Date: 20080529
  Transmission Date: 20081010
  Serious: No
  Sender: FDA-Public Use
  Company Number: None

PATIENT
  Age: 73 Year
  Sex: Female

DRUGS (1)
  1. VYTORIN [Suspect]
     Dosage: ONE TAB HS PO
     Route: 048

REACTIONS (4)
  - ASTHENIA [None]
  - ATAXIA [None]
  - MUSCLE SPASMS [None]
  - PAIN IN EXTREMITY [None]
